FAERS Safety Report 14384884 (Version 3)
Quarter: 2018Q1

REPORT INFORMATION
  Report Type: Report from Study
  Country: BR (occurrence: BR)
  Receive Date: 20180115
  Receipt Date: 20180215
  Transmission Date: 20180509
  Serious: Yes (Other)
  Sender: FDA-Public Use
  Company Number: BR-UCBSA-2017030988

PATIENT
  Age: 57 Year
  Sex: Female
  Weight: 66 kg

DRUGS (6)
  1. PARACETAMOL [Concomitant]
     Active Substance: ACETAMINOPHEN
     Indication: PYREXIA
     Dosage: UNK, AS NEEDED (PRN)
     Route: 048
     Dates: start: 20171018, end: 20171026
  2. FOSAMAX PLUS D [Concomitant]
     Active Substance: ALENDRONATE SODIUM\CHOLECALCIFEROL
     Indication: OSTEOPOROSIS
     Dosage: 1 TABLET EVERY 8 DAYS
     Route: 048
     Dates: start: 2015
  3. CERTOLIZUMAB PEGOL [Suspect]
     Active Substance: CERTOLIZUMAB PEGOL
     Indication: CROHN^S DISEASE
     Dosage: 400 MG, EV 2 WEEKS(QOW)
     Dates: start: 20170706, end: 20170927
  4. OSSOTRAT-D [Concomitant]
     Indication: OSTEOPOROSIS
     Dosage: 1 DF, ONCE DAILY (QD)
     Route: 048
     Dates: start: 2011
  5. CRESTOR [Concomitant]
     Active Substance: ROSUVASTATIN CALCIUM
     Indication: BLOOD CHOLESTEROL INCREASED
     Dosage: 20 MG, ONCE DAILY (QD)
     Route: 048
     Dates: start: 2016
  6. QUINOFLOX [Concomitant]
     Indication: VARICELLA
     Dosage: 1 DF, 2X/DAY (BID)
     Route: 048
     Dates: start: 20171018, end: 20171026

REACTIONS (7)
  - Drug hypersensitivity [Unknown]
  - Injection site reaction [Recovered/Resolved]
  - Varicella [Recovering/Resolving]
  - Off label use [Unknown]
  - Injection site pain [Recovered/Resolved]
  - Influenza [Recovering/Resolving]
  - Pyrexia [Recovering/Resolving]

NARRATIVE: CASE EVENT DATE: 20170706
